FAERS Safety Report 25614724 (Version 1)
Quarter: 2025Q3

REPORT INFORMATION
  Report Type: Spontaneous
  Country: EU (occurrence: EU)
  Receive Date: 20250729
  Receipt Date: 20250729
  Transmission Date: 20251020
  Serious: Yes (Hospitalization, Other)
  Sender: BRISTOL-MYERS SQUIBB COMPANY
  Company Number: None

PATIENT
  Age: 85 Year
  Sex: Female

DRUGS (9)
  1. ELIQUIS [Suspect]
     Active Substance: APIXABAN
     Indication: Atrial fibrillation
     Route: 048
     Dates: start: 20210517, end: 20210609
  2. CLOPIDOGREL BISULFATE [Suspect]
     Active Substance: CLOPIDOGREL BISULFATE
     Indication: Acute myocardial infarction
     Dosage: ONGOING THERAPY
     Route: 048
     Dates: start: 20210517
  3. DIGOXIN TEVA [Concomitant]
     Indication: Atrial fibrillation
     Dosage: ONGOING THERAPY
     Route: 048
  4. METOPROLOL SUCCINATE [Concomitant]
     Active Substance: METOPROLOL SUCCINATE
     Indication: Cardiac failure
     Dosage: THERAPY ONGOING; 1 TABLET IN THE MORNING AND 1/2 TABLET IN THE EVENING. EXTENDED-RELEASE TABLETS.
     Route: 048
  5. QUETIAPINE FUMARATE [Concomitant]
     Active Substance: QUETIAPINE FUMARATE
     Indication: Agitation
     Dosage: THERAPY ONGOING; AS NEEDED IN CASE OF EXCESSIVE AGITATION OR DIFFICULTY FALLING ASLEEP - 1 TABLET IN
  6. TRANDOLAPRIL [Concomitant]
     Active Substance: TRANDOLAPRIL
     Indication: Cardiac failure
     Dosage: ONGOING THERAPY
     Route: 048
  7. FUROSEMIDUM POLPHARMA [Concomitant]
     Indication: Cardiac failure
     Dosage: ONGOING THERAPY
     Route: 048
  8. PANTOPRAZOLE SODIUM [Concomitant]
     Active Substance: PANTOPRAZOLE SODIUM
     Indication: Product used for unknown indication
     Dosage: ONGOING THERAPY
     Route: 048
  9. ATORVASTATIN CALCIUM [Concomitant]
     Active Substance: ATORVASTATIN CALCIUM
     Indication: Cardiovascular event prophylaxis
     Dosage: ONGOING THERAPY
     Route: 048

REACTIONS (2)
  - Gastrointestinal haemorrhage [Unknown]
  - Abdominal pain [Unknown]

NARRATIVE: CASE EVENT DATE: 20210608
